FAERS Safety Report 6676974-5 (Version None)
Quarter: 2010Q2

REPORT INFORMATION
  Report Type: 
  Country: None (occurrence: None)
  Receive Date: 20100412
  Receipt Date: 20100329
  Transmission Date: 20101027
  Serious: Yes (Other)
  Sender: FDA-Public Use
  Company Number: US-ELI_LILLY_AND_COMPANY-US201001000160

PATIENT
  Sex: Female

DRUGS (5)
  1. FORTEO [Suspect]
     Indication: OSTEOPOROSIS
     Dosage: 20 UG, DAILY (1/D)
     Dates: start: 20091028, end: 20100113
  2. CRESTOR [Concomitant]
     Dosage: 5 MG, DAILY (1/D)
  3. VOLTAREN [Concomitant]
     Dosage: 75 MG, 2/D
  4. CITRACAL PLUS [Concomitant]
  5. NEXIUM [Concomitant]

REACTIONS (1)
  - BREAST CANCER [None]
